FAERS Safety Report 6691795-5 (Version None)
Quarter: 2010Q2

REPORT INFORMATION
  Report Type: 
  Country: None (occurrence: None)
  Receive Date: 20100422
  Receipt Date: 20090219
  Transmission Date: 20101027
  Serious: No
  Sender: FDA-Public Use
  Company Number: US-ASTRAZENECA-2009UW04840

PATIENT
  Age: 85 Year

DRUGS (2)
  1. METOPROLOL SUCCINATE [Suspect]
     Dosage: UNKNOWN
     Route: 048
  2. IMDUR [Suspect]
     Dosage: UNKNOWN
     Route: 065

REACTIONS (3)
  - FEELING HOT [None]
  - MALAISE [None]
  - VOMITING [None]
